FAERS Safety Report 10182703 (Version 1)
Quarter: 2014Q2

REPORT INFORMATION
  Report Type: Spontaneous
  Country: US (occurrence: None)
  Receive Date: 20140516
  Receipt Date: 20140516
  Transmission Date: 20141212
  Serious: Yes (Other)
  Sender: FDA-Public Use
  Company Number: UNT-2014-000115

PATIENT
  Age: 50 Year
  Sex: Female
  Weight: 76.2 kg

DRUGS (1)
  1. REMODULIN [Suspect]
     Indication: PULMONARY ARTERIAL HYPERTENSION
     Dosage: 0.048 UG/KG/MIN, CONTRINUING, SUBCUTANEOUS
     Route: 058
     Dates: start: 20090408

REACTIONS (5)
  - Cerebrovascular accident [None]
  - Malaise [None]
  - Oxygen saturation abnormal [None]
  - Thrombosis in device [None]
  - Device alarm issue [None]
